FAERS Safety Report 6702784-6 (Version None)
Quarter: 2010Q2

REPORT INFORMATION
  Report Type: 
  Country: None (occurrence: None)
  Receive Date: 20100429
  Receipt Date: 20100420
  Transmission Date: 20101027
  Serious: Yes (Hospitalization)
  Sender: FDA-Public Use
  Company Number: US-ELI_LILLY_AND_COMPANY-US201004005754

PATIENT
  Sex: Male

DRUGS (12)
  1. ALIMTA [Suspect]
     Indication: LARGE CELL CARCINOMA OF THE RESPIRATORY TRACT STAGE UNSPECIFIED
     Dosage: UNK, EVERY 3 WEEKS
     Dates: start: 20100412
  2. FOLIC ACID [Concomitant]
  3. VITAMIN B-12 [Concomitant]
     Dates: start: 20100402
  4. DEXAMETHASONE TAB [Concomitant]
     Dosage: UNK, DAY BEFORE, DAY OF, DAY AFTER PEMETREXED
  5. ASPIRIN [Concomitant]
     Dosage: 81 MG, DAILY (1/D)
  6. AMOXICILLIN [Concomitant]
     Indication: ACNE
  7. PLAVIX [Concomitant]
     Indication: VASCULAR GRAFT
     Dosage: UNK, EVERY 3 DAYS
  8. SIMVASTATIN [Concomitant]
     Indication: BLOOD CHOLESTEROL
  9. COQ10 [Concomitant]
     Indication: BLOOD CHOLESTEROL
  10. FENTANYL [Concomitant]
     Indication: PAIN
     Route: 062
  11. OXYCONTIN [Concomitant]
     Indication: PAIN
     Dosage: UNK, EACH EVENING
  12. ATARAX [Concomitant]
     Indication: PRURITUS

REACTIONS (10)
  - ASTHENIA [None]
  - HEADACHE [None]
  - HYPOPHAGIA [None]
  - MALAISE [None]
  - MASTICATION DISORDER [None]
  - NAUSEA [None]
  - ORAL PAIN [None]
  - PARAESTHESIA [None]
  - TOOTHACHE [None]
  - URTICARIA [None]
